FAERS Safety Report 15900894 (Version 1)
Quarter: 2019Q1

REPORT INFORMATION
  Report Type: Spontaneous
  Country: US (occurrence: US)
  Receive Date: 20190109
  Receipt Date: 20190109
  Transmission Date: 20190417
  Serious: Yes (Other)
  Sender: FDA-Public Use
  Company Number: None

PATIENT
  Age: 67 Year
  Sex: Female
  Weight: 58.97 kg

DRUGS (5)
  1. FLINTSTONES 1/DAY [Concomitant]
  2. CRESTOR 10MG 2X/WEEK [Concomitant]
  3. FLUTICASONE PROPIONATE. [Suspect]
     Active Substance: FLUTICASONE PROPIONATE
     Indication: RHINITIS ALLERGIC
     Dosage: ?          OTHER STRENGTH:50MCG PER SPRAY;QUANTITY:1 SPRAY;OTHER ROUTE:UP  MY NOSE?
     Dates: start: 20180301, end: 20181024
  4. VIT C 125MG [Concomitant]
  5. VIACTIV CALCIUM CHEW [Concomitant]

REACTIONS (2)
  - Headache [None]
  - Neck pain [None]

NARRATIVE: CASE EVENT DATE: 201803
